FAERS Safety Report 10921746 (Version 1)
Quarter: 2015Q1

REPORT INFORMATION
  Report Type: Spontaneous
  Country: US (occurrence: None)
  Receive Date: 20150128
  Receipt Date: 20150128
  Transmission Date: 20150721
  Serious: No
  Sender: FDA-Public Use
  Company Number: 2014TUS013929

PATIENT
  Sex: Female

DRUGS (4)
  1. BRINTELLIX [Suspect]
     Active Substance: VORTIOXETINE HYDROBROMIDE
     Indication: DEPRESSION
     Dosage: 1 DF, QD, ORAL
     Route: 048
     Dates: start: 20141113, end: 2014
  2. ZOLPIDEM [Concomitant]
     Active Substance: ZOLPIDEM\ZOLPIDEM TARTRATE
  3. BRINTELLIX [Suspect]
     Active Substance: VORTIOXETINE HYDROBROMIDE
     Indication: ANXIETY
     Dosage: 1 DF, QD, ORAL
     Route: 048
     Dates: start: 20141113, end: 2014
  4. LORAZEPAM. [Concomitant]
     Active Substance: LORAZEPAM

REACTIONS (4)
  - Activities of daily living impaired [None]
  - Wrong technique in drug usage process [None]
  - Off label use [None]
  - Influenza like illness [None]

NARRATIVE: CASE EVENT DATE: 20141113
